FAERS Safety Report 24557989 (Version 1)
Quarter: 2024Q4

REPORT INFORMATION
  Report Type: Spontaneous
  Country: SG (occurrence: SG)
  Receive Date: 20241028
  Receipt Date: 20241028
  Transmission Date: 20250114
  Serious: Yes (Hospitalization, Other)
  Sender: RANBAXY
  Company Number: SG-SUN PHARMACEUTICAL INDUSTRIES LTD-2024R1-430307

PATIENT
  Age: 47 Year
  Sex: Female

DRUGS (1)
  1. FLUVOXAMINE [Suspect]
     Active Substance: FLUVOXAMINE
     Indication: Antidepressant therapy
     Dosage: 25 MILLIGRAM, QD
     Route: 065

REACTIONS (3)
  - Akathisia [Recovered/Resolved]
  - Anxiety [Recovered/Resolved]
  - Chronic tic disorder [Recovered/Resolved]
